FAERS Safety Report 10621702 (Version 1)
Quarter: 2014Q4

REPORT INFORMATION
  Report Type: Report from Study
  Country: AR (occurrence: AR)
  Receive Date: 20141203
  Receipt Date: 20141203
  Transmission Date: 20150529
  Serious: Yes (Hospitalization)
  Sender: FDA-Public Use
  Company Number: PHHY2014AR155191

PATIENT
  Sex: Male

DRUGS (2)
  1. ONBREZ [Suspect]
     Active Substance: INDACATEROL
     Indication: DYSPNOEA
     Dosage: 1 DF, QD
     Route: 055
     Dates: start: 201405
  2. ONBREZ [Suspect]
     Active Substance: INDACATEROL
     Indication: PULMONARY FIBROSIS

REACTIONS (4)
  - Drug ineffective [Recovered/Resolved]
  - Malaise [Recovered/Resolved]
  - Choking [Recovered/Resolved]
  - Abasia [Recovered/Resolved]
